FAERS Safety Report 9557039 (Version 1)
Quarter: 2013Q3

REPORT INFORMATION
  Report Type: Spontaneous
  Country: BR (occurrence: BR)
  Receive Date: 20130926
  Receipt Date: 20130926
  Transmission Date: 20140515
  Serious: Yes (Other)
  Sender: FDA-Public Use
  Company Number: BR-BAYER-2013-115445

PATIENT
  Age: 37 Year
  Sex: Female
  Weight: 78.01 kg

DRUGS (1)
  1. YAZ (24) [Suspect]
     Indication: CONTRACEPTION
     Dosage: UNK
     Route: 048
     Dates: start: 2013

REACTIONS (4)
  - Inappropriate schedule of drug administration [None]
  - Metrorrhagia [Not Recovered/Not Resolved]
  - Gastric infection [Recovered/Resolved]
  - Diarrhoea [Recovered/Resolved]
